FAERS Safety Report 7088535-7 (Version None)
Quarter: 2010Q4

REPORT INFORMATION
  Report Type: 
  Country: None (occurrence: None)
  Receive Date: 20101108
  Receipt Date: 20101101
  Transmission Date: 20110411
  Serious: Yes (Other)
  Sender: FDA-Public Use
  Company Number: GB-PFIZER INC-2010138564

PATIENT
  Sex: Female

DRUGS (3)
  1. AZITHROMYCIN [Suspect]
     Dosage: 500 MG, 2X/DAY
  2. AMOXICILLIN [Concomitant]
     Dosage: 500 MG, 3X/DAY 4 DAYS A WEEK
  3. TINIDAZOLE [Concomitant]
     Dosage: 500 MG, 2X/DAY THREE DAYS A WEEK

REACTIONS (3)
  - ANGINA PECTORIS [None]
  - BUNDLE BRANCH BLOCK LEFT [None]
  - CHEST PAIN [None]
